FAERS Safety Report 25120425 (Version 1)
Quarter: 2025Q1

REPORT INFORMATION
  Report Type: Spontaneous
  Country: ES (occurrence: ES)
  Receive Date: 20250325
  Receipt Date: 20250325
  Transmission Date: 20250408
  Serious: Yes (Hospitalization)
  Sender: TEVA
  Company Number: None

PATIENT
  Age: 84 Year
  Sex: Male

DRUGS (2)
  1. PACLITAXEL [Interacting]
     Active Substance: PACLITAXEL
     Indication: Invasive breast carcinoma
     Dosage: PACLITAXEL (2698A)
     Route: 042
     Dates: start: 20240325, end: 20240617
  2. PHESGO [Interacting]
     Active Substance: HYALURONIDASE-ZZXF\PERTUZUMAB\TRASTUZUMAB
     Indication: Invasive breast carcinoma
     Route: 058
     Dates: start: 20240325, end: 20240715

REACTIONS (3)
  - Cardiac failure chronic [Not Recovered/Not Resolved]
  - Cardiac failure acute [Recovered/Resolved with Sequelae]
  - Concomitant disease aggravated [Recovered/Resolved with Sequelae]

NARRATIVE: CASE EVENT DATE: 20200101
